FAERS Safety Report 7259897-2 (Version None)
Quarter: 2011Q1

REPORT INFORMATION
  Report Type: 
  Country: None (occurrence: None)
  Receive Date: 20110130
  Receipt Date: 20100909
  Transmission Date: 20110831
  Serious: Yes (Other)
  Sender: FDA-Public Use
  Company Number: US-ABBOTT-10P-163-0669358-00

PATIENT
  Sex: Male
  Weight: 99.88 kg

DRUGS (8)
  1. HUMIRA [Suspect]
     Indication: PSORIASIS
     Route: 058
     Dates: start: 20060101, end: 20100101
  2. HUMIRA [Suspect]
     Indication: PSORIATIC ARTHROPATHY
  3. JANUMET [Concomitant]
     Indication: DIABETES MELLITUS
     Dosage: 50/1000 TWICE A DAY
  4. CARVEDILOL [Concomitant]
     Indication: HYPERTENSION
     Route: 048
  5. LOTREL [Concomitant]
     Indication: HYPERTENSION
     Dosage: 10/40 DAILY
     Route: 048
  6. GLYPIZIDE [Concomitant]
     Indication: DIABETES MELLITUS
     Route: 048
  7. PROZAC [Concomitant]
     Indication: DEPRESSION
     Route: 048
  8. CRESTOR [Concomitant]
     Indication: BLOOD CHOLESTEROL INCREASED
     Route: 048

REACTIONS (4)
  - HAEMORRHOIDS [None]
  - HAEMATOCHEZIA [None]
  - ANAL CANCER [None]
  - POLYP [None]
